FAERS Safety Report 8770289 (Version 1)
Quarter: 2012Q4

REPORT INFORMATION
  Report Type: 
  Country: US (occurrence: US)
  Receive Date: 20120904
  Receipt Date: 20120904
  Transmission Date: 20130627
  Serious: Yes (Hospitalization)
  Sender: FDA-Public Use
  Company Number: US-ELI_LILLY_AND_COMPANY-US201208009071

PATIENT
  Sex: Female

DRUGS (11)
  1. EFFIENT [Suspect]
     Indication: STENT PLACEMENT
     Dosage: 60 mg, UNK
     Dates: start: 20120824, end: 20120824
  2. EFFIENT [Suspect]
     Dosage: 10 mg, UNK
     Dates: start: 20120824, end: 20120826
  3. ASPIRIN [Concomitant]
  4. BENICAR HCT [Concomitant]
  5. CRESTOR [Concomitant]
  6. PROTONIX [Concomitant]
  7. PREMARIN [Concomitant]
  8. ADVAIR [Concomitant]
  9. SINGULAR [Concomitant]
  10. MULTIVITAMIN [Concomitant]
  11. ANGIOMAX [Concomitant]

REACTIONS (2)
  - Coronary artery stenosis [Not Recovered/Not Resolved]
  - Abdominal discomfort [Unknown]
